FAERS Safety Report 9521936 (Version 1)
Quarter: 2013Q3

REPORT INFORMATION
  Report Type: Spontaneous
  Country: GB (occurrence: None)
  Receive Date: 20130911
  Receipt Date: 20130911
  Transmission Date: 20140515
  Serious: Yes (Other)
  Sender: FDA-Public Use
  Company Number: GER/UKI/13/0034446

PATIENT
  Age: 7 Year
  Sex: Female
  Weight: 24.6 kg

DRUGS (1)
  1. CETIRIZINE [Suspect]
     Indication: URTICARIA CHRONIC
     Route: 048
     Dates: start: 201210, end: 201306

REACTIONS (3)
  - Abnormal behaviour [None]
  - Mood swings [None]
  - Anger [None]
